FAERS Safety Report 13622515 (Version 1)
Quarter: 2017Q2

REPORT INFORMATION
  Report Type: Spontaneous
  Country: US (occurrence: US)
  Receive Date: 20170607
  Receipt Date: 20170607
  Transmission Date: 20170830
  Serious: Yes (Other)
  Sender: FDA-Public Use
  Company Number: US-ROCHE-739284

PATIENT
  Sex: Male
  Weight: 96.6 kg

DRUGS (5)
  1. FUZEON [Suspect]
     Active Substance: ENFUVIRTIDE
     Indication: ANTIRETROVIRAL THERAPY
     Dosage: DURATION: 6 MONTHS. FORM: INJECTION, DOSE 90 MG/CC, OTHER INDICATION: HIV
     Route: 030
  2. APTIVUS [Concomitant]
     Active Substance: TIPRANAVIR
     Indication: ANTIRETROVIRAL THERAPY
     Route: 065
  3. TYLOSTERONE [Concomitant]
     Active Substance: DIETHYLSTILBESTROL\METHYLTESTOSTERONE
     Dosage: DOSE: BIM
     Route: 065
  4. PLAVIX [Concomitant]
     Active Substance: CLOPIDOGREL BISULFATE
     Dosage: DOSE: DAILY (Q DAY)
     Route: 065
  5. COMBIVIR [Concomitant]
     Active Substance: LAMIVUDINE\ZIDOVUDINE
     Indication: ANTIRETROVIRAL THERAPY
     Route: 065

REACTIONS (1)
  - Injection site extravasation [Not Recovered/Not Resolved]

NARRATIVE: CASE EVENT DATE: 201009
